FAERS Safety Report 24966416 (Version 1)
Quarter: 2025Q1

REPORT INFORMATION
  Report Type: Spontaneous
  Country: ES (occurrence: ES)
  Receive Date: 20250213
  Receipt Date: 20250213
  Transmission Date: 20250409
  Serious: Yes (Death, Other)
  Sender: BRISTOL-MYERS SQUIBB COMPANY
  Company Number: None

PATIENT
  Age: 85 Year
  Sex: Female
  Weight: 61 kg

DRUGS (1)
  1. ELIQUIS [Suspect]
     Active Substance: APIXABAN
     Indication: Arrhythmia prophylaxis
     Dosage: 5 MG EVERY 12 HOURS
     Route: 048
     Dates: start: 20240419, end: 20250114

REACTIONS (2)
  - Interstitial lung disease [Fatal]
  - Off label use [Unknown]
